FAERS Safety Report 21342879 (Version 2)
Quarter: 2022Q4

REPORT INFORMATION
  Report Type: Report from Study
  Country: IT (occurrence: IT)
  Receive Date: 20220916
  Receipt Date: 20221007
  Transmission Date: 20230112
  Serious: Yes (Other)
  Sender: FDA-Public Use
  Company Number: IT-GLAXOSMITHKLINE-IT2022GSK133342

PATIENT

DRUGS (5)
  1. DOSTARLIMAB [Suspect]
     Active Substance: DOSTARLIMAB
     Indication: Endometrial neoplasm
     Dosage: 4 CYCLE OF 500 MG Q3W FOLLOWED BY 1000 MG Q6W FOR ALL SUBSEQUENT CYCLE
     Route: 042
     Dates: start: 20220624, end: 20220624
  2. DOSTARLIMAB [Suspect]
     Active Substance: DOSTARLIMAB
     Dosage: 4 CYCLE OF 500 MG Q3W FOLLOWED BY 1000 MG Q6W FOR ALL SUBSEQUENT CYCLE
     Route: 042
     Dates: start: 20220812, end: 20220812
  3. ENOXAPARIN [Concomitant]
     Active Substance: ENOXAPARIN
     Indication: Deep vein thrombosis
     Dosage: 4000 IU, BID
     Route: 058
     Dates: start: 20220831
  4. FENTANYL [Concomitant]
     Active Substance: FENTANYL
     Indication: Pain
     Dosage: 75 UG, Z- EVERY 3 DAYS
     Dates: start: 20220606
  5. LEVETIRACETAM [Concomitant]
     Active Substance: LEVETIRACETAM
     Indication: Seizure prophylaxis
     Dosage: 500 MG, BID
     Route: 048
     Dates: start: 20220606

REACTIONS (1)
  - Malignant neoplasm progression [Not Recovered/Not Resolved]

NARRATIVE: CASE EVENT DATE: 20220831
